FAERS Safety Report 7488322-1 (Version None)
Quarter: 2011Q2

REPORT INFORMATION
  Report Type: 
  Country: None (occurrence: None)
  Receive Date: 20110518
  Receipt Date: 20110505
  Transmission Date: 20111010
  Serious: Yes (Other)
  Sender: FDA-Public Use
  Company Number: US-ELI_LILLY_AND_COMPANY-US201105002211

PATIENT
  Age: 30 Year
  Sex: Female

DRUGS (2)
  1. ZOLOFT [Concomitant]
     Dosage: UNK, UNKNOWN
  2. ZYPREXA [Suspect]
     Indication: BIPOLAR DISORDER
     Dosage: UNK, UNKNOWN
     Route: 065

REACTIONS (4)
  - INTENTIONAL DRUG MISUSE [None]
  - HOMICIDAL IDEATION [None]
  - HALLUCINATION, AUDITORY [None]
  - SUICIDAL BEHAVIOUR [None]
